FAERS Safety Report 9415231 (Version 1)
Quarter: 2013Q3

REPORT INFORMATION
  Report Type: Spontaneous
  Country: US (occurrence: US)
  Receive Date: 20130723
  Receipt Date: 20130723
  Transmission Date: 20140515
  Serious: Yes (Other)
  Sender: FDA-Public Use
  Company Number: US-PFIZER INC-2013213080

PATIENT
  Sex: Female

DRUGS (10)
  1. MORPHINE SULFATE [Suspect]
     Dosage: UNK
     Route: 065
  2. OXYCODONE HYDROCHLORIDE [Suspect]
     Indication: PAIN
     Dosage: UNK
     Route: 048
     Dates: start: 201212, end: 20130307
  3. DILAUDID [Suspect]
     Indication: HEADACHE
     Dosage: UNK
     Route: 065
     Dates: start: 2006
  4. CELEXA [Concomitant]
     Dosage: UNK
  5. WELLBUTRIN [Concomitant]
     Dosage: UNK
  6. DIAZEPAM [Concomitant]
     Dosage: UNK
  7. ASPIRIN [Concomitant]
     Dosage: UNK
  8. TYLENOL [Concomitant]
     Dosage: UNK
  9. ADVIL [Concomitant]
     Dosage: UNK
  10. FIORICET [Concomitant]
     Dosage: UNK

REACTIONS (2)
  - Drug abuse [Unknown]
  - Impaired driving ability [Unknown]
